FAERS Safety Report 8730121 (Version 3)
Quarter: 2012Q4

REPORT INFORMATION
  Report Type: 
  Country: CN (occurrence: CN)
  Receive Date: 20120817
  Receipt Date: 20120907
  Transmission Date: 20130627
  Serious: Yes (Death, Hospitalization, Other)
  Sender: FDA-Public Use
  Company Number: CN-ROCHE-1103034

PATIENT
  Age: 12 Year
  Sex: Male
  Weight: 70 kg

DRUGS (11)
  1. MABTHERA [Suspect]
     Indication: BURKITT^S LYMPHOMA
     Route: 065
     Dates: start: 20120131
  2. ROCEPHIN [Suspect]
     Indication: LUNG INFECTION
     Route: 065
     Dates: start: 20111223
  3. VINCRISTINE [Concomitant]
     Indication: BURKITT^S LYMPHOMA
     Route: 065
     Dates: start: 20111206
  4. PREDNISONE [Concomitant]
     Indication: BURKITT^S LYMPHOMA
     Route: 065
     Dates: start: 20111206
  5. CYTARABINE [Concomitant]
     Indication: BURKITT^S LYMPHOMA
     Route: 065
     Dates: start: 20111213
  6. IFOSFAMIDE [Concomitant]
     Indication: BURKITT^S LYMPHOMA
     Route: 065
     Dates: start: 20120106
  7. MESNA [Concomitant]
     Indication: BURKITT^S LYMPHOMA
     Route: 065
     Dates: start: 20120106
  8. ETOPOSIDE [Concomitant]
     Indication: BURKITT^S LYMPHOMA
     Route: 065
     Dates: start: 20120106
  9. METHOTREXATE [Concomitant]
     Indication: BURKITT^S LYMPHOMA
  10. DEXAMETHASONE [Concomitant]
     Indication: BURKITT^S LYMPHOMA
  11. VORICONAZOLE [Concomitant]
     Indication: LUNG INFECTION
     Route: 065
     Dates: start: 20120104

REACTIONS (8)
  - Lymphoma [Fatal]
  - Respiratory arrest [Fatal]
  - Cardiac arrest [Fatal]
  - Urinary bladder haemorrhage [Recovering/Resolving]
  - Decreased appetite [Not Recovered/Not Resolved]
  - Mouth ulceration [Recovering/Resolving]
  - Lung infection [Recovering/Resolving]
  - Bone marrow failure [Recovering/Resolving]
